FAERS Safety Report 8909947 (Version 1)
Quarter: 2012Q4

REPORT INFORMATION
  Report Type: 
  Country: CO (occurrence: CO)
  Receive Date: 20121115
  Receipt Date: 20121115
  Transmission Date: 20130627
  Serious: Yes (Other)
  Sender: FDA-Public Use
  Company Number: CO-PFIZER INC-2012284144

PATIENT
  Age: 13 Year
  Sex: Female

DRUGS (3)
  1. GENOTROPIN [Suspect]
     Indication: STATURE SHORT
     Dosage: 1.8 mg, 1x/day
     Route: 058
     Dates: start: 2010, end: 201210
  2. GENOTROPIN [Suspect]
     Dosage: 1.6 mg, 1x/day
     Route: 058
     Dates: start: 201210
  3. RITALIN [Concomitant]
     Indication: BEHAVIOR ABNORMAL
     Dosage: 10 mg, 1x/day
     Route: 048

REACTIONS (2)
  - Breast cyst [Not Recovered/Not Resolved]
  - Off label use [Not Recovered/Not Resolved]
